FAERS Safety Report 14705902 (Version 2)
Quarter: 2019Q2

REPORT INFORMATION
  Report Type: Spontaneous
  Country: US (occurrence: US)
  Receive Date: 20180402
  Receipt Date: 20190418
  Transmission Date: 20190711
  Serious: Yes (Other)
  Sender: FDA-Public Use
  Company Number: US-ASTRAZENECA-2018SE39051

PATIENT
  Age: 22384 Day
  Sex: Female
  Weight: 76.2 kg

DRUGS (27)
  1. PREVACID 24 HR [Suspect]
     Active Substance: LANSOPRAZOLE
     Indication: PEPTIC ULCER
     Route: 065
     Dates: start: 200901, end: 201801
  2. PROTONIX [Suspect]
     Active Substance: PANTOPRAZOLE SODIUM
     Indication: PEPTIC ULCER
     Route: 048
     Dates: start: 200901, end: 201801
  3. BUMETANIDE. [Concomitant]
     Active Substance: BUMETANIDE
  4. SODIUM CHLORIDE. [Concomitant]
     Active Substance: SODIUM CHLORIDE
  5. LORAZEPAM. [Concomitant]
     Active Substance: LORAZEPAM
  6. NEXIUM [Suspect]
     Active Substance: ESOMEPRAZOLE MAGNESIUM
     Indication: PEPTIC ULCER
     Route: 048
     Dates: start: 201001, end: 201401
  7. PRILOSEC [Suspect]
     Active Substance: OMEPRAZOLE MAGNESIUM
     Indication: PEPTIC ULCER
     Route: 048
     Dates: start: 201001, end: 201401
  8. CLONAZEPAM. [Concomitant]
     Active Substance: CLONAZEPAM
  9. KEPPRA [Concomitant]
     Active Substance: LEVETIRACETAM
  10. PRILOSEC [Suspect]
     Active Substance: OMEPRAZOLE MAGNESIUM
     Indication: PEPTIC ULCER
     Route: 048
     Dates: start: 200901, end: 201801
  11. PREVACID [Suspect]
     Active Substance: LANSOPRAZOLE
     Indication: PEPTIC ULCER
     Route: 065
     Dates: start: 200901, end: 201801
  12. LACTULOSE. [Concomitant]
     Active Substance: LACTULOSE
  13. ATENOLOL. [Concomitant]
     Active Substance: ATENOLOL
  14. ZOLPIDEM [Concomitant]
     Active Substance: ZOLPIDEM\ZOLPIDEM TARTRATE
  15. NEXIUM [Suspect]
     Active Substance: ESOMEPRAZOLE MAGNESIUM
     Indication: PEPTIC ULCER
     Route: 048
     Dates: start: 200901, end: 201801
  16. NEXIUM 24HR [Suspect]
     Active Substance: ESOMEPRAZOLE MAGNESIUM
     Indication: PEPTIC ULCER
     Route: 048
     Dates: start: 200901, end: 201801
  17. ASPIRIN. [Concomitant]
     Active Substance: ASPIRIN
  18. PRILOSEC [Suspect]
     Active Substance: OMEPRAZOLE MAGNESIUM
     Indication: PEPTIC ULCER
     Dosage: GENERIC
     Route: 048
     Dates: start: 20131202
  19. PROTONIX [Suspect]
     Active Substance: PANTOPRAZOLE SODIUM
     Indication: PEPTIC ULCER
     Route: 048
     Dates: start: 20131202
  20. PROTONIX [Suspect]
     Active Substance: PANTOPRAZOLE SODIUM
     Indication: PEPTIC ULCER
     Route: 048
     Dates: start: 20121004
  21. RIFAXIMIN. [Concomitant]
     Active Substance: RIFAXIMIN
  22. PRILOSEC OTC [Suspect]
     Active Substance: OMEPRAZOLE MAGNESIUM
     Indication: PEPTIC ULCER
     Route: 048
     Dates: start: 200901, end: 201801
  23. SPIRONOLACTONE. [Concomitant]
     Active Substance: SPIRONOLACTONE
  24. METOLAZONE. [Concomitant]
     Active Substance: METOLAZONE
  25. PRILOSEC [Suspect]
     Active Substance: OMEPRAZOLE MAGNESIUM
     Indication: PEPTIC ULCER
     Dosage: GENERIC
     Route: 048
     Dates: start: 20121004, end: 20170512
  26. DEXILANT [Suspect]
     Active Substance: DEXLANSOPRAZOLE
     Indication: PEPTIC ULCER
     Route: 065
     Dates: start: 200901, end: 201801
  27. RIFAXIMIN. [Concomitant]
     Active Substance: RIFAXIMIN

REACTIONS (1)
  - Chronic kidney disease [Not Recovered/Not Resolved]

NARRATIVE: CASE EVENT DATE: 20170331
